FAERS Safety Report 22948575 (Version 4)
Quarter: 2023Q4

REPORT INFORMATION
  Report Type: Report from Study
  Country: DE (occurrence: DE)
  Receive Date: 20230915
  Receipt Date: 20231116
  Transmission Date: 20240110
  Serious: Yes (Hospitalization)
  Sender: FDA-Public Use
  Company Number: DE-SA-SAC20230912001359

PATIENT
  Age: 68 Year
  Sex: Female
  Weight: 70 kg

DRUGS (8)
  1. ISATUXIMAB [Suspect]
     Active Substance: ISATUXIMAB
     Indication: Plasma cell myeloma
     Dosage: 700 MG
     Route: 041
     Dates: start: 20210812, end: 20210812
  2. ISATUXIMAB [Suspect]
     Active Substance: ISATUXIMAB
     Dosage: 700 MG
     Route: 041
     Dates: start: 20230807, end: 20230807
  3. CARFILZOMIB [Suspect]
     Active Substance: CARFILZOMIB
     Indication: Plasma cell myeloma
     Dosage: 123.2 MG
     Route: 042
     Dates: start: 20210812, end: 20210812
  4. CARFILZOMIB [Suspect]
     Active Substance: CARFILZOMIB
     Dosage: 123.2 MG
     Route: 042
     Dates: start: 20230907, end: 20230907
  5. LENALIDOMIDE [Suspect]
     Active Substance: LENALIDOMIDE
     Indication: Plasma cell myeloma
     Dosage: 5 MG
     Route: 048
     Dates: start: 20210812, end: 20210812
  6. LENALIDOMIDE [Suspect]
     Active Substance: LENALIDOMIDE
     Dosage: 5 MG
     Route: 048
     Dates: start: 20230907, end: 20230907
  7. DEXAMETHASONE [Concomitant]
     Active Substance: DEXAMETHASONE
     Indication: Plasma cell myeloma
     Dosage: 8 MG
     Route: 042
     Dates: start: 20210812, end: 20210812
  8. DEXAMETHASONE [Concomitant]
     Active Substance: DEXAMETHASONE
     Dosage: 8 MG
     Route: 042
     Dates: start: 20230907, end: 20230907

REACTIONS (1)
  - Urinary tract infection [Recovered/Resolved]

NARRATIVE: CASE EVENT DATE: 20230908
